FAERS Safety Report 22081099 (Version 2)
Quarter: 2023Q1

REPORT INFORMATION
  Report Type: Other
  Country: EG (occurrence: EG)
  Receive Date: 20230309
  Receipt Date: 20230329
  Transmission Date: 20230417
  Serious: Yes (Other)
  Sender: FDA-Public Use
  Company Number: EG-002147023-NVSC2023EG050704

PATIENT
  Age: 30 Year
  Sex: Male

DRUGS (5)
  1. XOLAIR [Suspect]
     Active Substance: OMALIZUMAB
     Indication: Urticaria
     Dosage: 150 MG
     Route: 030
     Dates: start: 20230223
  2. XOLAIR [Suspect]
     Active Substance: OMALIZUMAB
     Dosage: 150 MG
     Route: 030
     Dates: start: 20230224
  3. XOLAIR [Suspect]
     Active Substance: OMALIZUMAB
     Dosage: 300 MG, QMO
     Route: 058
  4. XOLAIR [Suspect]
     Active Substance: OMALIZUMAB
     Dosage: UNK
     Route: 058
  5. CHLORZOXAZONE;DICLOFENAC POTASSIUM;PARACETAMOL [Concomitant]
     Indication: Appetite disorder
     Dosage: QW, STOPPED FROM MONTH

REACTIONS (7)
  - Hypotension [Recovered/Resolved]
  - Injection site mass [Recovered/Resolved]
  - Injection site swelling [Recovered/Resolved]
  - Headache [Not Recovered/Not Resolved]
  - Incorrect route of product administration [Unknown]
  - Fatigue [Unknown]
  - Product administered by wrong person [Unknown]

NARRATIVE: CASE EVENT DATE: 20230224
